FAERS Safety Report 18898908 (Version 1)
Quarter: 2021Q1

REPORT INFORMATION
  Report Type: Spontaneous
  Country: TR (occurrence: TR)
  Receive Date: 20210216
  Receipt Date: 20210216
  Transmission Date: 20210420
  Serious: Yes (Death, Hospitalization, Other)
  Sender: FDA-Public Use
  Company Number: TR-009507513-2102TUR004994

PATIENT
  Age: 47 Year
  Sex: Female

DRUGS (2)
  1. PEMBROLIZUMAB. [Suspect]
     Active Substance: PEMBROLIZUMAB
     Indication: OVARIAN CANCER METASTATIC
     Dosage: UNK, CYCLICAL
  2. CARBOPLATIN (+) PACLITAXEL [Concomitant]
     Active Substance: CARBOPLATIN\PACLITAXEL
     Indication: OVARIAN CANCER METASTATIC
     Dosage: UNK, CYCLICAL

REACTIONS (1)
  - Immune-mediated enterocolitis [Fatal]
